FAERS Safety Report 10337217 (Version 1)
Quarter: 2014Q3

REPORT INFORMATION
  Report Type: Spontaneous
  Country: US (occurrence: US)
  Receive Date: 20140723
  Receipt Date: 20140723
  Transmission Date: 20150326
  Serious: Yes (Other)
  Sender: FDA-Public Use
  Company Number: US-PFIZER INC-2014202645

PATIENT
  Age: 50 Year
  Sex: Female
  Weight: 74.83 kg

DRUGS (3)
  1. ATORVASTATIN CALCIUM. [Suspect]
     Active Substance: ATORVASTATIN CALCIUM
     Dosage: 40 MG, DAILY
     Dates: start: 201406
  2. SYNTHROID [Concomitant]
     Active Substance: LEVOTHYROXINE SODIUM
     Dosage: UNK, DAILY
  3. ATORVASTATIN CALCIUM. [Suspect]
     Active Substance: ATORVASTATIN CALCIUM
     Indication: BLOOD CHOLESTEROL INCREASED
     Dosage: 10 MG, DAILY
     Dates: end: 2013

REACTIONS (3)
  - Gastric disorder [Unknown]
  - Coeliac disease [Unknown]
  - Malaise [Unknown]

NARRATIVE: CASE EVENT DATE: 2013
